FAERS Safety Report 19467857 (Version 9)
Quarter: 2022Q2

REPORT INFORMATION
  Report Type: Report from Study
  Country: US (occurrence: US)
  Receive Date: 20210628
  Receipt Date: 20220609
  Transmission Date: 20220720
  Serious: No
  Sender: FDA-Public Use
  Company Number: NVSC2021US143810

PATIENT
  Age: 75 Year
  Sex: Male

DRUGS (2)
  1. ENTRESTO [Suspect]
     Active Substance: SACUBITRIL\VALSARTAN
     Indication: Cardiac failure
     Dosage: 1 DOSAGE FORM, BID
     Route: 048
     Dates: start: 20210401
  2. FUROSEMIDE [Concomitant]
     Active Substance: FUROSEMIDE
     Indication: Polyuria
     Dosage: 10 MG, OTHER, 20 MG DAILY X 2 DAYS, THEN ONE DAY OFF, THEN 10 MG EVERY OTHER DAY X 2 AND THEN ONLY A
     Route: 048
     Dates: start: 202205

REACTIONS (9)
  - Gastrooesophageal reflux disease [Recovered/Resolved]
  - Sinus disorder [Recovered/Resolved]
  - Anxiety [Unknown]
  - Sinusitis [Unknown]
  - Tinnitus [Not Recovered/Not Resolved]
  - Joint swelling [Recovering/Resolving]
  - Fatigue [Recovered/Resolved]
  - Cough [Recovered/Resolved]
  - Hypotension [Recovered/Resolved]

NARRATIVE: CASE EVENT DATE: 20210401
